FAERS Safety Report 25833296 (Version 4)
Quarter: 2025Q4

REPORT INFORMATION
  Report Type: Spontaneous
  Country: US (occurrence: US)
  Receive Date: 20250922
  Receipt Date: 20251118
  Transmission Date: 20260118
  Serious: Yes (Hospitalization)
  Sender: SAREPTA THERAPEUTICS
  Company Number: US-SAREPTA THERAPEUTICS INC.-SRP2025-006435

PATIENT
  Age: 16 Year
  Sex: Male
  Weight: 87.528 kg

DRUGS (27)
  1. EXONDYS 51 [Suspect]
     Active Substance: ETEPLIRSEN
     Indication: Duchenne muscular dystrophy
     Dosage: 50 MG/ML INTRAVENOUS SOLUTION; 30 MG/KG IV WEEKLY VIA HOME INFUSION
     Dates: start: 20250404
  2. EXONDYS 51 [Suspect]
     Active Substance: ETEPLIRSEN
     Dosage: UNK
  3. EXONDYS 51 [Suspect]
     Active Substance: ETEPLIRSEN
     Dosage: 2500 MILLIGRAM, WEEKLY
  4. EXONDYS 51 [Suspect]
     Active Substance: ETEPLIRSEN
     Dosage: UNK
  5. EXONDYS 51 [Suspect]
     Active Substance: ETEPLIRSEN
     Dosage: 1800 MILLIGRAM, WEEKLY
     Dates: start: 20180918, end: 20180918
  6. ALBUTEROL [Concomitant]
     Active Substance: ALBUTEROL
     Indication: Product used for unknown indication
     Dosage: UNK, Q4H (2.5MG/3ML (0.083%) Q4H, PRN)
  7. CETIRIZINE [Concomitant]
     Active Substance: CETIRIZINE HYDROCHLORIDE
     Indication: Product used for unknown indication
     Dosage: 10 MILLIGRAM, QD, PRN
  8. CHOLECALCIFEROL [Concomitant]
     Active Substance: CHOLECALCIFEROL
     Indication: Product used for unknown indication
     Dosage: 50 MICROGRAM (2000 INTL UNITS), QD
  9. PEPCID [Concomitant]
     Active Substance: FAMOTIDINE
     Indication: Prophylaxis
     Dosage: 40 MILLIGRAM, QD (QHS)
  10. FLUTICASONE [Concomitant]
     Active Substance: FLUTICASONE
     Indication: Product used for unknown indication
     Dosage: 50 MICROGRAM/INHALATION
  11. GABAPENTIN [Concomitant]
     Active Substance: GABAPENTIN
     Indication: Product used for unknown indication
     Dosage: 100 MILLIGRAM, TID
  12. PREDNISOLONE [Concomitant]
     Active Substance: PREDNISOLONE
     Indication: Product used for unknown indication
     Dosage: 30 MG (10 ML) ORALLY, QD
  13. METOPROLOL [Concomitant]
     Active Substance: METOPROLOL
     Indication: Product used for unknown indication
     Dosage: 25 MILLIGRAM, QD
  14. RIBOFLAVIN [Concomitant]
     Active Substance: RIBOFLAVIN
     Indication: Product used for unknown indication
     Dosage: 100 MILLIGRAM, QD
  15. SPIRONOLACTONE [Concomitant]
     Active Substance: SPIRONOLACTONE
     Indication: Product used for unknown indication
     Dosage: 25 MILLIGRAM, QD
  16. COENZYME Q10 [Concomitant]
     Active Substance: DIETARY SUPPLEMENT\UBIDECARENONE
     Indication: Product used for unknown indication
     Dosage: 100 MILLIGRAM, QD
     Dates: start: 20150101
  17. LISINOPRIL [Concomitant]
     Active Substance: LISINOPRIL
     Indication: Product used for unknown indication
     Dosage: 2.5 MILLIGRAM, QD
     Dates: start: 20150701
  18. LISINOPRIL [Concomitant]
     Active Substance: LISINOPRIL
     Dosage: 2.5 MILLIGRAM, QD
     Dates: start: 2018, end: 2019
  19. LISINOPRIL [Concomitant]
     Active Substance: LISINOPRIL
     Dosage: 5 MILLIGRAM, QD
     Dates: start: 2019, end: 2020
  20. LISINOPRIL [Concomitant]
     Active Substance: LISINOPRIL
     Dosage: 10 MILLIGRAM, QD
     Dates: start: 2020, end: 2022
  21. LISINOPRIL [Concomitant]
     Active Substance: LISINOPRIL
     Dosage: 20 MILLIGRAM, QD
     Dates: start: 2022, end: 2022
  22. LISINOPRIL [Concomitant]
     Active Substance: LISINOPRIL
     Dosage: 15 MILLIGRAM, QD
     Dates: start: 2022
  23. LISINOPRIL [Concomitant]
     Active Substance: LISINOPRIL
     Dosage: 15 MILLIGRAM, QD
     Dates: start: 2023
  24. FISH OIL\TOCOPHEROL [Concomitant]
     Active Substance: FISH OIL\TOCOPHEROL
     Indication: Product used for unknown indication
     Dosage: 1000 MILLIGRAM, QD
     Dates: start: 20150701
  25. VITAMIN C [Concomitant]
     Active Substance: ASCORBIC ACID
     Indication: Product used for unknown indication
     Dosage: 1000 MILLIGRAM, QD
     Dates: start: 20150701
  26. EMFLAZA [Concomitant]
     Active Substance: DEFLAZACORT
     Indication: Product used for unknown indication
     Dosage: 30 MILLIGRAM, QD
     Dates: start: 20151202
  27. EMFLAZA [Concomitant]
     Active Substance: DEFLAZACORT
     Dosage: 36 MILLIGRAM, QD

REACTIONS (7)
  - Multisystem inflammatory syndrome in children [Unknown]
  - COVID-19 [Recovered/Resolved]
  - Myopericarditis [Recovered/Resolved]
  - Troponin I increased [Recovering/Resolving]
  - Left ventricular dysfunction [Recovering/Resolving]
  - Chest pain [Recovered/Resolved]
  - Constipation [Recovered/Resolved]

NARRATIVE: CASE EVENT DATE: 20250801
